FAERS Safety Report 4983150-0 (Version None)
Quarter: 2006Q2

REPORT INFORMATION
  Report Type: 
  Country: None (occurrence: None)
  Receive Date: 20060426
  Receipt Date: 20050905
  Transmission Date: 20061013
  Serious: Yes (Hospitalization)
  Sender: FDA-Public Use
  Company Number: 2005SE05015

PATIENT
  Age: 23099 Day
  Sex: Male
  Weight: 45 kg

DRUGS (6)
  1. TCV-116 [Suspect]
     Indication: DIABETIC NEPHROPATHY
     Route: 048
     Dates: start: 20050712
  2. GLUCOBAY [Concomitant]
     Indication: DIABETES MELLITUS NON-INSULIN-DEPENDENT
     Route: 048
     Dates: start: 19990617
  3. KINEDAK [Concomitant]
     Indication: DIABETIC NEUROPATHY
     Route: 048
     Dates: start: 20010629
  4. OPALMON [Concomitant]
     Indication: DIABETIC NEUROPATHY
     Route: 048
     Dates: start: 20030212
  5. NORVASC [Concomitant]
     Indication: HYPERTENSION
     Route: 048
     Dates: start: 20050518
  6. NOVOLIN R [Concomitant]
     Indication: DIABETES MELLITUS NON-INSULIN-DEPENDENT
     Route: 058
     Dates: start: 20050419

REACTIONS (10)
  - BLOOD PRESSURE SYSTOLIC INCREASED [None]
  - CONTUSION [None]
  - FALL [None]
  - HYPOAESTHESIA [None]
  - HYPOGLYCAEMIA [None]
  - PAIN IN EXTREMITY [None]
  - SKIN HAEMORRHAGE [None]
  - SKIN LACERATION [None]
  - SPINAL FRACTURE [None]
  - VERTEBRAL INJURY [None]
